FAERS Safety Report 5441489-9 (Version None)
Quarter: 2007Q3

REPORT INFORMATION
  Report Type: 
  Country: None (occurrence: None)
  Receive Date: 20070829
  Receipt Date: 20070815
  Transmission Date: 20080115
  Serious: Yes (Hospitalization)
  Sender: FDA-Public Use
  Company Number: MEDI-0005948

PATIENT
  Age: 58 Year
  Sex: Female
  Weight: 54.4316 kg

DRUGS (10)
  1. ETHYOL [Suspect]
     Indication: LUNG NEOPLASM MALIGNANT
     Dosage: 500 MG, 5 IN 5 D, SUBCUTANEOUS
     Route: 058
     Dates: start: 20070227, end: 20070311
  2. ETHYOL [Suspect]
     Indication: LUNG NEOPLASM MALIGNANT
     Dosage: 500 MG, 5 IN 5 D, SUBCUTANEOUS
     Route: 058
     Dates: start: 20070312, end: 20070405
  3. ETHYOL [Suspect]
     Indication: LUNG NEOPLASM MALIGNANT
     Dosage: 500 MG, 5 IN 5 D, SUBCUTANEOUS
     Route: 058
     Dates: start: 20070420, end: 20070424
  4. RADIATION THERAPY [Concomitant]
  5. CHEMOTHERAPY [Concomitant]
  6. WELLBUTRIN [Concomitant]
  7. XANAX [Concomitant]
  8. COMPAZINE [Concomitant]
  9. CARAFATE [Concomitant]
  10. LORTAB [Concomitant]

REACTIONS (6)
  - DEHYDRATION [None]
  - HYPOTENSION [None]
  - INJECTION SITE REACTION [None]
  - NAUSEA [None]
  - OESOPHAGEAL CANDIDIASIS [None]
  - PRURITUS [None]
